FAERS Safety Report 8442749-X (Version None)
Quarter: 2012Q2

REPORT INFORMATION
  Report Type: 
  Country: None (occurrence: None)
  Receive Date: 20120615
  Receipt Date: 20120614
  Transmission Date: 20120825
  Serious: Yes (Death, Hospitalization)
  Sender: FDA-Public Use
  Company Number: FR-ROCHE-1073472

PATIENT
  Age: 77 Year
  Sex: Male

DRUGS (7)
  1. AVASTIN [Suspect]
     Indication: HEPATIC CANCER METASTATIC
     Route: 042
     Dates: start: 20111014, end: 20120220
  2. FEBUXOSTAT [Concomitant]
  3. PREDNISOLONE [Concomitant]
     Dosage: DAILY
  4. PREDNISOLONE [Concomitant]
     Dosage: DAILY
  5. FLUOROURACIL [Suspect]
     Indication: HEPATIC CANCER METASTATIC
     Route: 042
     Dates: start: 20111014, end: 20120220
  6. SOTALOL HCL [Concomitant]
     Route: 048
  7. OXALIPLATIN [Suspect]
     Indication: HEPATIC CANCER METASTATIC
     Route: 042
     Dates: start: 20111014, end: 20120220

REACTIONS (3)
  - CONDITION AGGRAVATED [None]
  - PULMONARY FIBROSIS [None]
  - DYSPNOEA [None]
